FAERS Safety Report 21653226 (Version 8)
Quarter: 2023Q2

REPORT INFORMATION
  Report Type: Spontaneous
  Country: CA (occurrence: CA)
  Receive Date: 20221128
  Receipt Date: 20230601
  Transmission Date: 20230721
  Serious: Yes (Death, Other)
  Sender: FDA-Public Use
  Company Number: CA-INCYTE CORPORATION-2022IN004257

PATIENT

DRUGS (13)
  1. PEMAZYRE [Suspect]
     Active Substance: PEMIGATINIB
     Indication: Cholangiocarcinoma
     Dosage: 9MG DIE X14 DAYS, THEN 7 DAYS OFF THERAPY
     Route: 048
     Dates: start: 20220428
  2. PEMAZYRE [Suspect]
     Active Substance: PEMIGATINIB
     Dosage: 9 MILLIGRAM, QD
     Route: 048
     Dates: start: 20220429
  3. PEMAZYRE [Suspect]
     Active Substance: PEMIGATINIB
     Dosage: 9MG ONCE DAILY X 14DAYS THEN 7DAYS OFF
     Route: 048
     Dates: start: 20220429
  4. PEMAZYRE [Suspect]
     Active Substance: PEMIGATINIB
     Dosage: 9MG, DIE X 14 DAYS, 1 WEEK OFF THERAPY
     Route: 048
     Dates: start: 20220429
  5. PEMAZYRE [Suspect]
     Active Substance: PEMIGATINIB
     Dosage: 13.5 MILLIGRAM ONCE DAILY FOR 14 DAYS THEN 7 DAYS OFF
     Route: 048
     Dates: start: 20220429
  6. PEMAZYRE [Suspect]
     Active Substance: PEMIGATINIB
     Dosage: 9 MILLIGRAM ONCE DAILY FOR 14 DAYS THEN 7 DAYS OFF
     Route: 048
     Dates: start: 20220428, end: 20220923
  7. PEMAZYRE [Suspect]
     Active Substance: PEMIGATINIB
     Dosage: 9 MILLIGRAM ONCE DAILY FOR 14 DAYS THEN 7 DAYS OFF
     Route: 048
     Dates: start: 20220428, end: 20220923
  8. PEMAZYRE [Suspect]
     Active Substance: PEMIGATINIB
     Dosage: 9 MILLIGRAM DIE FOR 14 DAYS THEN 7 DAYS OFF
     Route: 048
     Dates: start: 20220428
  9. PEMAZYRE [Suspect]
     Active Substance: PEMIGATINIB
     Dosage: 9 MILLIGRAM ONCE DAILY FOR 14 DAYS, THEN 7 DAYS OFF THERAPY
     Route: 048
     Dates: start: 20221128
  10. PEMAZYRE [Suspect]
     Active Substance: PEMIGATINIB
     Dosage: 4.5 MILLIGRAM ONCE DAILY X 14 DAYS ON THEN 7 DAYS OFF.
     Route: 048
     Dates: start: 20221230
  11. PEMAZYRE [Suspect]
     Active Substance: PEMIGATINIB
     Dosage: 4.5 MILLIGRAM ONCE DAILY FOR 14 DAYS, THEN 7 DAYS OF
     Route: 048
     Dates: start: 20220429
  12. PEMAZYRE [Suspect]
     Active Substance: PEMIGATINIB
     Dosage: 4.5 MILLIGRAM ONCE DAILY FOR 14 DAYS, THEN 7 DAYS OFF
     Route: 048
     Dates: start: 20230315
  13. PEMAZYRE [Suspect]
     Active Substance: PEMIGATINIB
     Dosage: 4.5 MILLIGRAM ONCE DAILY FOR 7 DAYS, THEN 7 DAYS OFF
     Route: 048
     Dates: start: 20230315

REACTIONS (11)
  - Death [Fatal]
  - Renal impairment [Not Recovered/Not Resolved]
  - Weight fluctuation [Not Recovered/Not Resolved]
  - Swelling [Recovering/Resolving]
  - Proteinuria [Not Recovered/Not Resolved]
  - Creatinine urine increased [Not Recovered/Not Resolved]
  - Intra-abdominal fluid collection [Not Recovered/Not Resolved]
  - Off label use [Unknown]
  - Alopecia [Not Recovered/Not Resolved]
  - Epistaxis [Not Recovered/Not Resolved]
  - Haemoglobin decreased [Unknown]

NARRATIVE: CASE EVENT DATE: 20220429
